FAERS Safety Report 15890771 (Version 2)
Quarter: 2019Q1

REPORT INFORMATION
  Report Type: Spontaneous
  Country: US (occurrence: US)
  Receive Date: 20190130
  Receipt Date: 20190227
  Transmission Date: 20190417
  Serious: No
  Sender: FDA-Public Use
  Company Number: US-SA-2019SA022274

PATIENT
  Age: 53 Year
  Sex: Male

DRUGS (1)
  1. DUPIXENT [Suspect]
     Active Substance: DUPILUMAB
     Indication: DERMATITIS ATOPIC
     Dosage: 300 MG, QOW
     Route: 058
     Dates: start: 201811

REACTIONS (7)
  - Rash papular [Recovered/Resolved]
  - Pruritus [Recovering/Resolving]
  - Swelling face [Recovered/Resolved]
  - Lacrimation increased [Unknown]
  - Secretion discharge [Recovered/Resolved]
  - Feeling hot [Unknown]
  - Ocular hyperaemia [Unknown]

NARRATIVE: CASE EVENT DATE: 201811
